FAERS Safety Report 21113275 (Version 1)
Quarter: 2022Q3

REPORT INFORMATION
  Report Type: Spontaneous
  Country: ES (occurrence: ES)
  Receive Date: 20220721
  Receipt Date: 20220721
  Transmission Date: 20221027
  Serious: Yes (Hospitalization, Other)
  Sender: FDA-Public Use
  Company Number: None

PATIENT
  Age: 72 Year
  Sex: Female

DRUGS (6)
  1. ENOXAPARIN SODIUM [Suspect]
     Active Substance: ENOXAPARIN SODIUM
     Indication: Prophylaxis
     Dosage: 40MG, QD
     Route: 058
     Dates: start: 20220509
  2. CALCIUM PIDOLATE [Suspect]
     Active Substance: CALCIUM PIDOLATE
     Dosage: 1 DF, QD
     Route: 048
     Dates: start: 20220519, end: 20220526
  3. IBUPROFEN [Suspect]
     Active Substance: IBUPROFEN
     Dosage: UNK
     Route: 048
     Dates: start: 20220514, end: 20220526
  4. MEROPENEM [Suspect]
     Active Substance: MEROPENEM
     Indication: Antibiotic prophylaxis
     Dosage: 2G,Q8H
     Route: 042
     Dates: start: 20220509, end: 20220519
  5. TEICOPLANIN [Suspect]
     Active Substance: TEICOPLANIN
     Indication: Antibiotic prophylaxis
     Dosage: 800 MG, QD
     Route: 042
     Dates: start: 20220509, end: 20220520
  6. TERIPARATIDE [Suspect]
     Active Substance: TERIPARATIDE
     Indication: Osteoporosis
     Dosage: 20UG, QD
     Route: 058
     Dates: start: 20220519

REACTIONS (3)
  - Drug reaction with eosinophilia and systemic symptoms [Recovering/Resolving]
  - Pyrexia [Recovered/Resolved]
  - Hypertransaminasaemia [Recovered/Resolved]

NARRATIVE: CASE EVENT DATE: 20220519
